FAERS Safety Report 14995575 (Version 3)
Quarter: 2018Q2

REPORT INFORMATION
  Report Type: Spontaneous
  Country: CN (occurrence: CN)
  Receive Date: 20180611
  Receipt Date: 20180613
  Transmission Date: 20180711
  Serious: Yes (Hospitalization, Other)
  Sender: FDA-Public Use
  Company Number: CN-BEH-2018091165

PATIENT
  Age: 65 Year
  Sex: Male

DRUGS (1)
  1. ALBUMINAR-20 [Suspect]
     Active Substance: ALBUMIN HUMAN
     Indication: BLOOD ALBUMIN DECREASED
     Dosage: 2 DF, QD
     Route: 065
     Dates: start: 20180525, end: 20180527

REACTIONS (2)
  - Blood albumin decreased [Unknown]
  - Drug ineffective [Unknown]
